FAERS Safety Report 4485289-5 (Version None)
Quarter: 2004Q4

REPORT INFORMATION
  Report Type: 
  Country: None (occurrence: None)
  Receive Date: 20041022
  Receipt Date: 20041022
  Transmission Date: 20050328
  Serious: Yes (Hospitalization)
  Sender: FDA-Public Use
  Company Number: None

PATIENT
  Age: 56 Year
  Sex: Female

DRUGS (2)
  1. VINORELBINE TARTRATE [Suspect]
     Indication: CERVIX CARCINOMA STAGE IV
     Dates: start: 20040122, end: 20040206
  2. CISPLATIN [Suspect]
     Indication: CERVIX CARCINOMA STAGE IV

REACTIONS (3)
  - ABDOMINAL PAIN [None]
  - FEBRILE NEUTROPENIA [None]
  - INFECTION [None]
